FAERS Safety Report 19502744 (Version 4)
Quarter: 2022Q2

REPORT INFORMATION
  Report Type: Spontaneous
  Country: CA (occurrence: CA)
  Receive Date: 20210707
  Receipt Date: 20220616
  Transmission Date: 20220721
  Serious: Yes (Life-Threatening, Hospitalization)
  Sender: FDA-Public Use
  Company Number: CA-PFIZER INC-2021800142

PATIENT
  Age: 10 Year
  Sex: Male

DRUGS (12)
  1. HYDROMORPHONE HYDROCHLORIDE [Interacting]
     Active Substance: HYDROMORPHONE HYDROCHLORIDE
     Indication: Pain
     Dosage: 1 MG Q4HR PRN
     Dates: start: 20180127, end: 20180202
  2. HYDROMORPHONE HYDROCHLORIDE [Interacting]
     Active Substance: HYDROMORPHONE HYDROCHLORIDE
     Dosage: 2 MG Q4HR PRN
     Dates: start: 20180127, end: 20180202
  3. IBUPROFEN [Interacting]
     Active Substance: IBUPROFEN
     Indication: Pain
     Dosage: 600 MG Q6HR PRN
     Route: 048
     Dates: start: 20180128, end: 20180207
  4. DDAVP [Interacting]
     Active Substance: DESMOPRESSIN ACETATE
     Indication: Diabetes insipidus
     Dosage: 10 UG
     Route: 045
     Dates: end: 201802
  5. DDAVP [Interacting]
     Active Substance: DESMOPRESSIN ACETATE
     Indication: Diabetes insipidus
     Dosage: 1.6 MG, 4X/DAY
     Route: 048
  6. DDAVP [Interacting]
     Active Substance: DESMOPRESSIN ACETATE
     Dosage: 0.6 MG, AS NEEDED
     Dates: start: 20180203, end: 20180206
  7. DDAVP [Interacting]
     Active Substance: DESMOPRESSIN ACETATE
     Dosage: 0.5 MG, 2X/DAY
  8. DDAVP [Interacting]
     Active Substance: DESMOPRESSIN ACETATE
     Dosage: 0.1 MG, AS NEEDED
  9. DDAVP [Interacting]
     Active Substance: DESMOPRESSIN ACETATE
     Dosage: 3.4 MG, DAILY
  10. HYDROCORTISONE [Concomitant]
     Active Substance: HYDROCORTISONE
     Indication: Diabetes insipidus
     Dosage: 6 MG, 2X/DAY (6.3 MG/M2/DAY)
     Route: 048
  11. HYDROCORTISONE [Concomitant]
     Active Substance: HYDROCORTISONE
     Dosage: 15 MG, 3X/DAY
  12. SOMATROPIN [Concomitant]
     Active Substance: SOMATROPIN
     Indication: Diabetes insipidus
     Dosage: 1.3 MG, DAILY
     Route: 058

REACTIONS (2)
  - Drug interaction [Unknown]
  - Hyponatraemia [Recovered/Resolved]

NARRATIVE: CASE EVENT DATE: 20180202
